FAERS Safety Report 25675842 (Version 1)
Quarter: 2025Q3

REPORT INFORMATION
  Report Type: Spontaneous
  Country: US (occurrence: None)
  Receive Date: 20250812
  Receipt Date: 20250812
  Transmission Date: 20251021
  Serious: Yes (Hospitalization, Disabling, Other)
  Sender: FDA-CTU
  Company Number: None

PATIENT
  Age: 47 Year
  Sex: Female
  Weight: 78.3 kg

DRUGS (4)
  1. MOUNJARO [Suspect]
     Active Substance: TIRZEPATIDE
     Indication: Type 2 diabetes mellitus
     Dates: start: 20250525, end: 20250625
  2. METFORMIN [Concomitant]
     Active Substance: METFORMIN HYDROCHLORIDE
  3. HERBALS\TURMERIC [Concomitant]
     Active Substance: HERBALS\TURMERIC
  4. Vit 3 + K [Concomitant]

REACTIONS (9)
  - Myocardial infarction [None]
  - Impaired gastric emptying [None]
  - Hypophagia [None]
  - Weight decreased [None]
  - Blood pressure increased [None]
  - Heart rate increased [None]
  - Dyspepsia [None]
  - Starvation [None]
  - Blood ketone body increased [None]

NARRATIVE: CASE EVENT DATE: 20250622
